FAERS Safety Report 15693085 (Version 1)
Quarter: 2018Q4

REPORT INFORMATION
  Report Type: Spontaneous
  Country: US (occurrence: US)
  Receive Date: 20181206
  Receipt Date: 20181206
  Transmission Date: 20190205
  Serious: Yes (Death, Hospitalization)
  Sender: FDA-Public Use
  Company Number: US-TEVA-2018-US-983320

PATIENT
  Age: 74 Year
  Sex: Female

DRUGS (11)
  1. MYCOPHENOLATE [Concomitant]
     Active Substance: MYCOPHENOLIC ACID
     Dosage: ADMINISTERED SINCE HOSPITAL DAY 3
     Route: 065
  2. NIACIN. [Suspect]
     Active Substance: NIACIN
     Dosage: ADMINISTERED THREE TIMES DAILY; FORMULATION: IMMEDIATE RELEASE
     Route: 065
  3. SPIRONOLACTONE. [Concomitant]
     Active Substance: SPIRONOLACTONE
     Dosage: ADMINISTERED SINCE HOSPITAL DAY 3
     Route: 065
  4. METRONIDAZOLE. [Concomitant]
     Active Substance: METRONIDAZOLE
     Dosage: ADMINISTERED SINCE HOSPITAL DAY 3
     Route: 065
  5. ACETAMINOPHEN. [Concomitant]
     Active Substance: ACETAMINOPHEN
     Route: 065
  6. PREDNISONE. [Concomitant]
     Active Substance: PREDNISONE
     Dosage: HOME DOSE: 25MG EVERY OTHER DAY.
     Route: 065
  7. MYCOPHENOLATE MOFETIL. [Concomitant]
     Active Substance: MYCOPHENOLATE MOFETIL
     Route: 065
  8. INSULIN [Concomitant]
     Active Substance: INSULIN NOS
     Dosage: ADMINISTERED SINCE HOSPITAL DAY 3
     Route: 065
  9. NIACIN. [Suspect]
     Active Substance: NIACIN
     Dosage: ADMINISTERED THREE TIMES DAILY; FORMULATION: EXTENDED RELEASE
     Route: 065
  10. PREDNISONE. [Concomitant]
     Active Substance: PREDNISONE
     Dosage: DOSE UP-TITRATED TO 40MG ON DAY 2 OF HOSPITALISATION
     Route: 065
  11. FUROSEMIDE. [Concomitant]
     Active Substance: FUROSEMIDE
     Dosage: ADMINISTERED SINCE HOSPITAL DAY 3
     Route: 065

REACTIONS (4)
  - Hepatic steatosis [Fatal]
  - Hepatic ischaemia [Fatal]
  - Hepatic necrosis [Fatal]
  - Acute hepatic failure [Fatal]
